FAERS Safety Report 16075393 (Version 2)
Quarter: 2019Q1

REPORT INFORMATION
  Report Type: Report from Study
  Country: US (occurrence: US)
  Receive Date: 20190315
  Receipt Date: 20190320
  Transmission Date: 20190418
  Serious: Yes (Hospitalization)
  Sender: FDA-Public Use
  Company Number: US-BIOGEN-2019BI00710717

PATIENT
  Sex: Female

DRUGS (1)
  1. TECFIDERA [Suspect]
     Active Substance: DIMETHYL FUMARATE
     Indication: MULTIPLE SCLEROSIS
     Dosage: MAINTENANCE DOSE
     Route: 048
     Dates: start: 20190111, end: 20190225

REACTIONS (5)
  - Vomiting [Recovered/Resolved]
  - Infection [Recovered/Resolved]
  - Multiple sclerosis relapse [Recovered/Resolved]
  - Decreased immune responsiveness [Not Recovered/Not Resolved]
  - Diarrhoea [Recovered/Resolved]
